FAERS Safety Report 23402216 (Version 3)
Quarter: 2024Q4

REPORT INFORMATION
  Report Type: Spontaneous
  Country: US (occurrence: US)
  Receive Date: 20240115
  Receipt Date: 20241106
  Transmission Date: 20250114
  Serious: Yes (Death, Hospitalization)
  Sender: PFIZER
  Company Number: US-PFIZER INC-PV202400005367

PATIENT
  Age: 76 Year
  Sex: Female
  Weight: 88.45 kg

DRUGS (1)
  1. IBRANCE [Suspect]
     Active Substance: PALBOCICLIB
     Dosage: 125 MG
     Route: 048
     Dates: start: 202307

REACTIONS (3)
  - Acute respiratory failure [Fatal]
  - Nausea [Unknown]
  - Neoplasm progression [Unknown]
